FAERS Safety Report 10885150 (Version 1)
Quarter: 2015Q1

REPORT INFORMATION
  Report Type: Spontaneous
  Country: US (occurrence: None)
  Receive Date: 20150227
  Receipt Date: 20150227
  Transmission Date: 20150721
  Serious: Yes (Disabling, Other)
  Sender: FDA-Public Use
  Company Number: None

PATIENT
  Age: 13 Year
  Sex: Male
  Weight: 125.65 kg

DRUGS (10)
  1. ONE A DAY HEALTH HEART BLEND [Concomitant]
  2. MELATONIN [Concomitant]
     Active Substance: MELATONIN
  3. IMMUNE HEALTH [Concomitant]
  4. MODAIFIL [Concomitant]
  5. COFFEE [Concomitant]
     Active Substance: ARABICA COFFEE BEAN\COFFEE BEAN
  6. VITAMIN B12 [Concomitant]
     Active Substance: CYANOCOBALAMIN
  7. SLEEP MASK FOR APNEA [Concomitant]
  8. GARCINA [Concomitant]
  9. RITALIN [Suspect]
     Active Substance: METHYLPHENIDATE HYDROCHLORIDE
     Indication: ATTENTION DEFICIT/HYPERACTIVITY DISORDER
     Dosage: 1 PILL
     Route: 048
  10. NUGENIX [Concomitant]

REACTIONS (7)
  - Weight increased [None]
  - Gynaecomastia [None]
  - Hypersomnia [None]
  - Cataplexy [None]
  - Hypertension [None]
  - Narcolepsy [None]
  - Feeling abnormal [None]
